FAERS Safety Report 5480513-4 (Version None)
Quarter: 2007Q4

REPORT INFORMATION
  Report Type: 
  Country: None (occurrence: None)
  Receive Date: 20071009
  Receipt Date: 20071005
  Transmission Date: 20080405
  Serious: Yes (Death)
  Sender: FDA-Public Use
  Company Number: ZA-ASTRAZENECA-2007SE04310

PATIENT
  Age: 26472 Day
  Sex: Male
  Weight: 100 kg

DRUGS (4)
  1. CRESTOR [Suspect]
     Indication: MYOCARDIAL ISCHAEMIA
     Route: 048
  2. ELANTAN [Concomitant]
     Indication: MYOCARDIAL ISCHAEMIA
  3. INSULIN [Concomitant]
     Indication: DIABETES MELLITUS
  4. PLAVIX [Concomitant]
     Indication: MYOCARDIAL ISCHAEMIA

REACTIONS (1)
  - HEPATORENAL FAILURE [None]
